FAERS Safety Report 14190562 (Version 1)
Quarter: 2017Q4

REPORT INFORMATION
  Report Type: Spontaneous
  Country: US (occurrence: US)
  Receive Date: 20171114
  Receipt Date: 20171114
  Transmission Date: 20180321
  Serious: Yes (Other)
  Sender: FDA-Public Use
  Company Number: None

PATIENT
  Age: 63 Year
  Sex: Female

DRUGS (1)
  1. NEUPRO [Suspect]
     Active Substance: ROTIGOTINE
     Indication: PARKINSON^S DISEASE
     Dosage: 2MG/24HR TD PATCH MG MILLIGRAMS
     Route: 062

REACTIONS (3)
  - Wound secretion [None]
  - Condition aggravated [None]
  - Blister [None]

NARRATIVE: CASE EVENT DATE: 20171006
